FAERS Safety Report 15585079 (Version 1)
Quarter: 2018Q4

REPORT INFORMATION
  Report Type: Spontaneous
  Country: GR (occurrence: GR)
  Receive Date: 20181105
  Receipt Date: 20181105
  Transmission Date: 20190205
  Serious: Yes (Death)
  Sender: FDA-Public Use
  Company Number: PHHY2018GR143567

PATIENT
  Sex: Male

DRUGS (1)
  1. RYDAPT [Suspect]
     Active Substance: MIDOSTAURIN
     Indication: MASTOCYTOSIS
     Dosage: UNK
     Route: 065

REACTIONS (3)
  - Cervix oedema [Fatal]
  - Respiratory distress [Fatal]
  - Haematuria [Fatal]
